FAERS Safety Report 8591847-9 (Version None)
Quarter: 2012Q3

REPORT INFORMATION
  Report Type: 
  Country: None (occurrence: None)
  Receive Date: 20120814
  Receipt Date: 20120806
  Transmission Date: 20120928
  Serious: Yes (Other)
  Sender: FDA-Public Use
  Company Number: DE-JNJFOC-20120800579

PATIENT
  Sex: Female
  Weight: 64 kg

DRUGS (6)
  1. XARELTO [Suspect]
     Indication: HIP ARTHROPLASTY
     Route: 048
     Dates: start: 20120618, end: 20120718
  2. PANTOPRAZOLE [Concomitant]
     Indication: PROPHYLAXIS
     Dates: start: 20120612, end: 20120718
  3. XARELTO [Suspect]
     Indication: THROMBOSIS PROPHYLAXIS
     Route: 048
     Dates: start: 20120618, end: 20120718
  4. LEVOTHYROXINE SODIUM [Concomitant]
     Indication: THYROIDECTOMY
  5. ARCOXIA [Concomitant]
     Indication: INFLAMMATION
     Dates: start: 20120613, end: 20120726
  6. ENOXAPARIN SODIUM [Concomitant]
     Indication: ANTICOAGULANT THERAPY
     Dates: start: 20120611, end: 20120617

REACTIONS (2)
  - ANAL FISSURE [None]
  - MENORRHAGIA [None]
